FAERS Safety Report 5130066-5 (Version None)
Quarter: 2006Q4

REPORT INFORMATION
  Report Type: 
  Country: None (occurrence: None)
  Receive Date: 20061018
  Receipt Date: 20060607
  Transmission Date: 20070319
  Serious: Yes (Hospitalization)
  Sender: FDA-Public Use
  Company Number: US-ABBOTT-06P-163-0335247-00

PATIENT
  Sex: Female
  Weight: 63.106 kg

DRUGS (3)
  1. HUMIRA [Suspect]
     Indication: RHEUMATOID ARTHRITIS
     Route: 058
     Dates: start: 20051001, end: 20060401
  2. METHOTREXATE [Suspect]
     Indication: RHEUMATOID ARTHRITIS
     Route: 048
     Dates: start: 20050101
  3. CARBAMAZEPINE [Suspect]
     Indication: TRIGEMINAL NEURALGIA
     Dates: start: 20050101

REACTIONS (2)
  - DEMYELINATION [None]
  - RADICULOPATHY [None]
